FAERS Safety Report 23706164 (Version 3)
Quarter: 2024Q2

REPORT INFORMATION
  Report Type: Report from Study
  Country: US (occurrence: US)
  Receive Date: 20240404
  Receipt Date: 20240528
  Transmission Date: 20240715
  Serious: Yes (Other)
  Sender: FDA-Public Use
  Company Number: US-HORIZON THERAPEUTICS-HZN-2024-003842

PATIENT
  Age: 56 Year
  Sex: Female

DRUGS (3)
  1. TEPEZZA [Suspect]
     Active Substance: TEPROTUMUMAB-TRBW
     Indication: Endocrine ophthalmopathy
     Dosage: UNK, EVERY 3 WEEKS, FIRST INFUSION
     Route: 042
     Dates: start: 20240321
  2. TEPEZZA [Suspect]
     Active Substance: TEPROTUMUMAB-TRBW
     Dosage: UNK, EVERY 3 WEEKS, SECOND INFUSION
     Route: 042
     Dates: start: 20240412
  3. TRELEGY ELLIPTA [Concomitant]
     Active Substance: FLUTICASONE FUROATE\UMECLIDINIUM BROMIDE\VILANTEROL TRIFENATATE
     Indication: Asthma

REACTIONS (9)
  - Postmenopausal haemorrhage [Not Recovered/Not Resolved]
  - Pruritus [Not Recovered/Not Resolved]
  - Periorbital swelling [Recovering/Resolving]
  - Urticaria [Recovering/Resolving]
  - Rash [Not Recovered/Not Resolved]
  - Vision blurred [Not Recovered/Not Resolved]
  - Swelling [Recovering/Resolving]
  - Muscle spasms [Unknown]
  - Product use in unapproved therapeutic environment [Unknown]

NARRATIVE: CASE EVENT DATE: 20240101
